FAERS Safety Report 20749595 (Version 1)
Quarter: 2022Q2

REPORT INFORMATION
  Report Type: Spontaneous
  Country: US (occurrence: None)
  Receive Date: 20220425
  Receipt Date: 20220425
  Transmission Date: 20220721
  Serious: Yes (Hospitalization)
  Sender: FDA-Public Use
  Company Number: None

PATIENT
  Age: 79 Year
  Sex: Male
  Weight: 54.43 kg

DRUGS (11)
  1. CAPECITABINE [Suspect]
     Active Substance: CAPECITABINE
     Indication: Cholangiocarcinoma
     Dosage: OTHER QUANTITY : 1500-1000MG;?FREQUENCY : TWICE A DAY;?
     Route: 048
     Dates: start: 202203
  2. albuterol [Concomitant]
  3. BENZONATATE [Concomitant]
     Active Substance: BENZONATATE
  4. bludesonide inhalation [Concomitant]
  5. docusate sodium guaifenesin [Concomitant]
  6. hydrocodone-acetaminophen ipratropium-albuterol inhation [Concomitant]
  7. irbesartan-hydrochlorothiazole [Concomitant]
  8. SENNOSIDES [Concomitant]
     Active Substance: SENNOSIDES
  9. VITAMIN C [Concomitant]
     Active Substance: ASCORBIC ACID
  10. VITAMIN D3 [Concomitant]
     Active Substance: CHOLECALCIFEROL
  11. ZINC [Concomitant]
     Active Substance: ZINC

REACTIONS (2)
  - Hospitalisation [None]
  - Malaise [None]
